FAERS Safety Report 20473718 (Version 1)
Quarter: 2022Q1

REPORT INFORMATION
  Report Type: Other
  Country: EG (occurrence: None)
  Receive Date: 20220215
  Receipt Date: 20220215
  Transmission Date: 20220423
  Serious: Yes (Death, Other)
  Sender: FDA-Public Use
  Company Number: EG-ROCHE-3018940

PATIENT

DRUGS (3)
  1. RIBAVIRIN [Suspect]
     Active Substance: RIBAVIRIN
     Indication: Chronic hepatitis C
     Route: 065
  2. SOFOSBUVIR [Suspect]
     Active Substance: SOFOSBUVIR
     Indication: Chronic hepatitis C
     Route: 065
  3. DACLATASVIR [Suspect]
     Active Substance: DACLATASVIR
     Indication: Chronic hepatitis C
     Route: 065

REACTIONS (5)
  - Haematemesis [Fatal]
  - Hepatic failure [Unknown]
  - Hepatic encephalopathy [Unknown]
  - Anaemia [Unknown]
  - Jaundice [Unknown]
